FAERS Safety Report 7053077-1 (Version None)
Quarter: 2010Q4

REPORT INFORMATION
  Report Type: 
  Country: None (occurrence: None)
  Receive Date: 20101020
  Receipt Date: 20101011
  Transmission Date: 20110411
  Serious: Yes (Hospitalization)
  Sender: FDA-Public Use
  Company Number: US-JNJFOC-20101003172

PATIENT
  Sex: Male
  Weight: 77.11 kg

DRUGS (3)
  1. DURAGESIC-100 [Suspect]
     Indication: PAIN
     Dosage: 8 X 100UG/HR PATCHES EVERY 48 HOURS
     Route: 062
  2. DURAGESIC-100 [Suspect]
     Dosage: 8 X 100UG/HR PATCHES EVERY 48 HOURS
     Route: 062
  3. VALIUM [Concomitant]
     Indication: CONVULSION
     Route: 048

REACTIONS (8)
  - ANAEMIA [None]
  - GASTROINTESTINAL HAEMORRHAGE [None]
  - HYPOVITAMINOSIS [None]
  - NECROSIS [None]
  - OSTEONECROSIS [None]
  - PAIN [None]
  - PRODUCT QUALITY ISSUE [None]
  - WRONG TECHNIQUE IN DRUG USAGE PROCESS [None]
